FAERS Safety Report 7926014 (Version 3)
Quarter: 2013Q2

REPORT INFORMATION
  Report Type: Spontaneous
  Country: US (occurrence: US)
  Receive Date: 20110502
  Receipt Date: 20130430
  Transmission Date: 20140414
  Serious: No
  Sender: FDA-Public Use
  Company Number: US-ASTRAZENECA-2010SE52695

PATIENT
  Age: 99 Year
  Sex: Female

DRUGS (4)
  1. NEXIUM [Suspect]
     Route: 048
  2. NEXIUM [Suspect]
     Dosage: TAKES 2 PILLS INSTEAD OF 1
     Route: 048
  3. NEXIUM [Suspect]
     Dosage: ONCE DAILY
     Route: 048
  4. NEXIUM [Suspect]
     Dosage: TWICE DAILY
     Route: 048

REACTIONS (10)
  - Nasopharyngitis [Unknown]
  - Hypoacusis [Unknown]
  - Hypertension [Unknown]
  - Blood cholesterol increased [Unknown]
  - Thyroid disorder [Unknown]
  - Renal disorder [Unknown]
  - Malaise [Unknown]
  - Dyspepsia [Unknown]
  - Intentional drug misuse [Unknown]
  - Off label use [Unknown]
